FAERS Safety Report 9183424 (Version 1)
Quarter: 2012Q4

REPORT INFORMATION
  Report Type: 
  Country: CZ (occurrence: CZ)
  Receive Date: 20121101
  Receipt Date: 20121101
  Transmission Date: 20130627
  Serious: Yes (Life-Threatening, Other)
  Sender: FDA-Public Use
  Company Number: CZ-ASTRAZENECA-2012SE82727

PATIENT
  Age: 25049 Day
  Sex: Male

DRUGS (6)
  1. MARCAIN [Suspect]
     Indication: POSTOPERATIVE ANALGESIA
     Route: 008
     Dates: start: 20121011, end: 20121011
  2. PLASMALYTE ROZTOK [Concomitant]
  3. CLEXANE [Concomitant]
  4. HELICID [Concomitant]
  5. CEFAZOLIN [Concomitant]
  6. GELASPAN [Concomitant]

REACTIONS (3)
  - Somnolence [Recovered/Resolved]
  - Bradycardia [Recovered/Resolved]
  - Hypotension [Recovered/Resolved]
